FAERS Safety Report 15289754 (Version 4)
Quarter: 2018Q4

REPORT INFORMATION
  Report Type: Spontaneous
  Country: CA (occurrence: CA)
  Receive Date: 20180817
  Receipt Date: 20181005
  Transmission Date: 20190204
  Serious: Yes (Other)
  Sender: FDA-Public Use
  Company Number: CA-TEVA-2018-CA-942459

PATIENT
  Age: 67 Year
  Sex: Female

DRUGS (9)
  1. TEVA-ALENDRONATE [Suspect]
     Active Substance: ALENDRONATE SODIUM
     Indication: BONE DISORDER
     Route: 048
     Dates: start: 201110, end: 201804
  2. GABAPENTIN. [Concomitant]
     Active Substance: GABAPENTIN
     Dosage: ONGOING
     Route: 048
  3. PANTALOC [Concomitant]
     Dosage: ONGOING
     Route: 048
  4. IRON [Concomitant]
     Active Substance: IRON
     Dosage: ONGOING
     Route: 048
  5. VITAMIN D [Concomitant]
     Active Substance: CHOLECALCIFEROL
     Dosage: ONGOING
     Route: 048
  6. SPIRONOLACTONE. [Concomitant]
     Active Substance: SPIRONOLACTONE
     Dosage: ONGOING
     Route: 048
  7. CALCIUM [Concomitant]
     Active Substance: CALCIUM
     Dosage: ONGOING
     Route: 048
  8. NADOLOL. [Concomitant]
     Active Substance: NADOLOL
     Dosage: ONGOING
     Route: 048
  9. FUROSEMIDE. [Concomitant]
     Active Substance: FUROSEMIDE
     Dosage: ONGOING
     Route: 048

REACTIONS (4)
  - Spinal fracture [Not Recovered/Not Resolved]
  - Drug ineffective [Unknown]
  - Osteoporosis [Not Recovered/Not Resolved]
  - Bone density abnormal [Not Recovered/Not Resolved]

NARRATIVE: CASE EVENT DATE: 201804
